FAERS Safety Report 7760709-9 (Version None)
Quarter: 2011Q3

REPORT INFORMATION
  Report Type: 
  Country: None (occurrence: None)
  Receive Date: 20110919
  Receipt Date: 20110915
  Transmission Date: 20111222
  Serious: Yes (Death, Hospitalization)
  Sender: FDA-Public Use
  Company Number: FR-ABBOTT-11P-056-0728653-00

PATIENT
  Age: 7 Year
  Sex: Female

DRUGS (8)
  1. VALPROIC ACID [Suspect]
     Indication: ENCEPHALOPATHY
     Dosage: DAILY
     Route: 048
     Dates: end: 20100716
  2. PHENYTOIN [Concomitant]
     Indication: PRODUCT USED FOR UNKNOWN INDICATION
  3. PHENOBARBITAL TAB [Concomitant]
     Indication: PRODUCT USED FOR UNKNOWN INDICATION
  4. DIACOMIT [Suspect]
     Indication: ENCEPHALOPATHY
     Route: 048
     Dates: end: 20100716
  5. CLONAZEPAM [Suspect]
     Indication: EPILEPSY
     Route: 048
  6. ACETAMINOPHEN [Concomitant]
     Indication: PRODUCT USED FOR UNKNOWN INDICATION
  7. ZARONTIN [Suspect]
     Indication: ENCEPHALOPATHY
     Route: 048
     Dates: end: 20100716
  8. TOPIRAMATE [Suspect]
     Indication: ENCEPHALOPATHY
     Route: 048
     Dates: end: 20100716

REACTIONS (5)
  - HYPERTHERMIA MALIGNANT [None]
  - ACUTE HEPATIC FAILURE [None]
  - RENAL FAILURE ACUTE [None]
  - RHABDOMYOLYSIS [None]
  - STATUS EPILEPTICUS [None]
